FAERS Safety Report 8212762-6 (Version None)
Quarter: 2012Q1

REPORT INFORMATION
  Report Type: 
  Country: None (occurrence: None)
  Receive Date: 20120229
  Receipt Date: 20110325
  Transmission Date: 20120608
  Serious: Yes (Other)
  Sender: FDA-Public Use
  Company Number: US-JNJFOC-20110400347

PATIENT
  Age: 18 Year
  Sex: Female
  Weight: 64.9 kg

DRUGS (2)
  1. IMPLANON [Suspect]
     Indication: CONTRACEPTION
     Dates: start: 20101101
  2. IBUPROFEN [Suspect]
     Indication: HEADACHE
     Dosage: ORAL
     Route: 048
     Dates: start: 20101201

REACTIONS (3)
  - HAEMATEMESIS [None]
  - NAUSEA [None]
  - BACK PAIN [None]
